FAERS Safety Report 8444494-3 (Version None)
Quarter: 2012Q2

REPORT INFORMATION
  Report Type: 
  Country: None (occurrence: None)
  Receive Date: 20120612
  Receipt Date: 20120612
  Transmission Date: 20120825
  Serious: Yes (Other)
  Sender: FDA-Public Use
  Company Number: None

PATIENT
  Age: 27 Year
  Sex: Male
  Weight: 113.3993 kg

DRUGS (1)
  1. DIVALPROEX EXTENDED-RELEASE [Suspect]
     Indication: MOOD ALTERED
     Dosage: 3000 MG DAILY ORAL
     Route: 048
     Dates: start: 20111018, end: 20111213

REACTIONS (1)
  - PANCREATITIS [None]
